FAERS Safety Report 7214364-7 (Version None)
Quarter: 2010Q4

REPORT INFORMATION
  Report Type: 
  Country: None (occurrence: None)
  Receive Date: 20101230
  Receipt Date: 20101223
  Transmission Date: 20110411
  Serious: Yes (Other)
  Sender: FDA-Public Use
  Company Number: 2010178013

PATIENT
  Age: 47 Year
  Sex: Male

DRUGS (9)
  1. FRAGMIN [Suspect]
     Indication: EMBOLISM VENOUS
     Dosage: 10000 IU, 1X/DAY, SUBCUTANEOUS
     Route: 058
  2. CIPROFLOXACIN [Concomitant]
  3. PANTOPRAZOLE SODIUM [Concomitant]
  4. RENAGEL [Concomitant]
  5. TRAZODONE HYDROCHLORIDE [Concomitant]
  6. LYRICA [Concomitant]
  7. DUPHALIC (LACTULOSE) [Concomitant]
  8. FENTANYL [Concomitant]
  9. MARCUMAR [Concomitant]

REACTIONS (4)
  - ELECTROCARDIOGRAM T WAVE PEAKED [None]
  - HYPERKALAEMIA [None]
  - PROTHROMBIN TIME SHORTENED [None]
  - SINUS TACHYCARDIA [None]
